FAERS Safety Report 15416092 (Version 3)
Quarter: 2019Q1

REPORT INFORMATION
  Report Type: Spontaneous
  Country: US (occurrence: US)
  Receive Date: 20180923
  Receipt Date: 20190108
  Transmission Date: 20190417
  Serious: Yes (Hospitalization)
  Sender: FDA-Public Use
  Company Number: US-BIOGEN-2018BI00626955

PATIENT
  Age: 41 Year
  Sex: Male

DRUGS (2)
  1. TYSABRI [Suspect]
     Active Substance: NATALIZUMAB
     Indication: MULTIPLE SCLEROSIS
     Route: 042
     Dates: start: 20120123
  2. TYSABRI [Suspect]
     Active Substance: NATALIZUMAB
     Dosage: INFUSED OVER 1 HOUR
     Route: 042
     Dates: end: 20180719

REACTIONS (4)
  - Heart rate increased [Unknown]
  - Multiple sclerosis relapse [Recovered/Resolved]
  - Myiasis [Unknown]
  - Multiple sclerosis [Unknown]

NARRATIVE: CASE EVENT DATE: 20180929
